FAERS Safety Report 8463893 (Version 3)
Quarter: 2013Q4

REPORT INFORMATION
  Report Type: Report from Study
  Country: US (occurrence: US)
  Receive Date: 20120316
  Receipt Date: 20131224
  Transmission Date: 20140711
  Serious: Yes (Death, Hospitalization, Other)
  Sender: FDA-Public Use
  Company Number: PHEH2012US005910

PATIENT
  Sex: Female

DRUGS (1)
  1. TOBI [Suspect]
     Dosage: 300 MG, BID 28 DAYS ON AND 28 DAYS OFF
     Route: 055
     Dates: start: 20110804, end: 20111121

REACTIONS (6)
  - Bronchiectasis [Fatal]
  - Pseudomonas infection [Fatal]
  - Cachexia [Fatal]
  - Increased bronchial secretion [Fatal]
  - Malnutrition [Fatal]
  - Terminal state [Unknown]
